FAERS Safety Report 6333961-4 (Version None)
Quarter: 2009Q3

REPORT INFORMATION
  Report Type: 
  Country: None (occurrence: None)
  Receive Date: 20090829
  Receipt Date: 20090625
  Transmission Date: 20100115
  Serious: No
  Sender: FDA-Public Use
  Company Number: US-ABBOTT-09P-163-0582039-00

PATIENT
  Sex: Female
  Weight: 67.192 kg

DRUGS (13)
  1. SIMCOR [Suspect]
     Indication: BLOOD CHOLESTEROL INCREASED
     Dosage: 500/20 MG AT BEDTIME
     Dates: start: 20090617
  2. SIMCOR [Suspect]
  3. XANAX [Concomitant]
     Indication: DRUG USE FOR UNKNOWN INDICATION
  4. CARDIZEM [Concomitant]
     Indication: DRUG USE FOR UNKNOWN INDICATION
  5. PRISTIQ [Concomitant]
     Indication: DRUG USE FOR UNKNOWN INDICATION
  6. PROPRANOLOL [Concomitant]
     Indication: DRUG USE FOR UNKNOWN INDICATION
  7. COQ10 [Concomitant]
     Indication: DRUG USE FOR UNKNOWN INDICATION
  8. CEREFOLIN [Concomitant]
     Indication: DRUG USE FOR UNKNOWN INDICATION
  9. CITRACAL CA [Concomitant]
     Indication: DRUG USE FOR UNKNOWN INDICATION
  10. CENTRUM [Concomitant]
     Indication: DRUG USE FOR UNKNOWN INDICATION
  11. LOVAZA [Concomitant]
     Indication: DRUG USE FOR UNKNOWN INDICATION
  12. VITAMIN D [Concomitant]
     Indication: DRUG USE FOR UNKNOWN INDICATION
  13. MG [Concomitant]
     Indication: DRUG USE FOR UNKNOWN INDICATION

REACTIONS (2)
  - FLUSHING [None]
  - SKIN BURNING SENSATION [None]
